FAERS Safety Report 10513642 (Version 3)
Quarter: 2014Q4

REPORT INFORMATION
  Report Type: Spontaneous
  Country: JP (occurrence: JP)
  Receive Date: 20141013
  Receipt Date: 20141128
  Transmission Date: 20150528
  Serious: Yes (Other)
  Sender: FDA-Public Use
  Company Number: JP-OTSUKA-JP-2014-18006

PATIENT

DRUGS (4)
  1. LASIX M [Suspect]
     Active Substance: FUROSEMIDE
     Indication: PRODUCT USED FOR UNKNOWN INDICATION
     Dosage: 40 MG MILLIGRAM(S), DAILY DOSE
     Route: 042
     Dates: start: 20140206, end: 20140223
  2. SAMSCA [Suspect]
     Active Substance: TOLVAPTAN
     Indication: OEDEMA DUE TO HEPATIC DISEASE
     Dosage: 7.5 MG MILLIGRAM(S), DAILY DOSE
     Route: 048
     Dates: start: 20140212
  3. SAMSCA [Suspect]
     Active Substance: TOLVAPTAN
     Indication: ASCITES
  4. LASIX M [Suspect]
     Active Substance: FUROSEMIDE
     Indication: ASCITES

REACTIONS (1)
  - Hepatic encephalopathy [Recovered/Resolved]

NARRATIVE: CASE EVENT DATE: 20140224
